FAERS Safety Report 9384774 (Version 1)
Quarter: 2013Q3

REPORT INFORMATION
  Report Type: Report from Study
  Country: NL (occurrence: NL)
  Receive Date: 20130705
  Receipt Date: 20130705
  Transmission Date: 20140515
  Serious: Yes (Hospitalization)
  Sender: FDA-Public Use
  Company Number: NL-ROCHE-1240023

PATIENT
  Age: 58 Year
  Sex: Male
  Weight: 80 kg

DRUGS (8)
  1. VEMURAFENIB [Suspect]
     Indication: MALIGNANT MELANOMA
     Route: 048
  2. DICLOFENAC [Concomitant]
     Dosage: SINCE 32 YEARS PATIENT DOSE 750 MG.
     Route: 065
     Dates: start: 20130422
  3. DICLOFENAC [Concomitant]
     Route: 065
  4. OMEPRAZOLE [Concomitant]
     Route: 065
  5. CALCIFEROL [Concomitant]
     Route: 065
  6. CALCICHEW D3 [Concomitant]
  7. DEPAKINE CHRONO [Concomitant]
     Route: 065
     Dates: start: 20130422
  8. DEPAKINE CHRONO [Concomitant]
     Route: 065

REACTIONS (1)
  - Status epilepticus [Recovering/Resolving]
